FAERS Safety Report 8062673-4 (Version None)
Quarter: 2012Q1

REPORT INFORMATION
  Report Type: 
  Country: None (occurrence: None)
  Receive Date: 20120123
  Receipt Date: 20120118
  Transmission Date: 20120608
  Serious: Yes (Death, Hospitalization)
  Sender: FDA-Public Use
  Company Number: US-CELGENEUS-163-20785-11120351

PATIENT
  Sex: Male
  Weight: 90.8 kg

DRUGS (18)
  1. NAMENDA [Concomitant]
     Dosage: 10 MILLIGRAM
     Route: 048
  2. FENOFIBRATE [Concomitant]
     Dosage: 200 MILLIGRAM
     Route: 048
  3. GLYBURIDE [Concomitant]
     Dosage: 5 MILLIGRAM
     Route: 048
  4. ZOLOFT [Concomitant]
     Dosage: 100 MILLIGRAM
     Route: 048
  5. FERROUS SULFATE TAB [Concomitant]
     Dosage: 325
     Route: 048
  6. PRIMAXIN [Concomitant]
     Route: 065
     Dates: start: 20111201
  7. CRESTOR [Concomitant]
     Dosage: 10 MILLIGRAM
     Route: 048
  8. MULTI-VITAMINS [Concomitant]
     Route: 065
  9. PROPRANOLOL [Concomitant]
     Dosage: 10 MILLIGRAM
     Route: 048
  10. METFORMIN [Concomitant]
     Dosage: 500 MILLIGRAM
     Route: 048
  11. NULYTELY [Concomitant]
     Route: 065
  12. THALOMID [Suspect]
     Dosage: 150 MILLIGRAM
     Route: 048
     Dates: start: 20110927, end: 20111121
  13. FLAGYL [Concomitant]
     Route: 065
     Dates: start: 20111201
  14. GALANTAMINE HYDROBROMIDE [Concomitant]
     Route: 065
     Dates: start: 20110101
  15. DEPAKOTE [Concomitant]
     Dosage: 100 MILLIGRAM
     Route: 065
  16. SEROQUEL [Concomitant]
     Dosage: 50MG QAM, 200MG AT BEDTIME
     Route: 048
  17. INSULIN [Concomitant]
     Dosage: SLIDING SCALE
     Route: 065
  18. ASCORBIC ACID [Concomitant]
     Dosage: 500 MILLIGRAM
     Route: 048

REACTIONS (2)
  - HYPOXIC-ISCHAEMIC ENCEPHALOPATHY [None]
  - GASTROINTESTINAL HAEMORRHAGE [None]
